FAERS Safety Report 11741013 (Version 2)
Quarter: 2015Q4

REPORT INFORMATION
  Report Type: Spontaneous
  Country: NO (occurrence: NO)
  Receive Date: 20151115
  Receipt Date: 20151126
  Transmission Date: 20160304
  Serious: Yes (Life-Threatening, Hospitalization, Disabling, Other)
  Sender: FDA-Public Use
  Company Number: NO-HOSPIRA-3074463

PATIENT
  Age: 72 Year
  Sex: Female

DRUGS (10)
  1. PARACET                            /01573601/ [Concomitant]
     Indication: BACK PAIN
     Route: 048
  2. SOMAC [Concomitant]
     Active Substance: PANTOPRAZOLE SODIUM
     Indication: DYSPEPSIA
     Route: 048
  3. REMERON [Concomitant]
     Active Substance: MIRTAZAPINE
     Indication: DEPRESSION
     Dosage: IN THE EVENING
     Route: 048
  4. GERIMAX [Concomitant]
     Indication: VITAMIN SUPPLEMENTATION
     Route: 048
  5. PREDNISOLONE. [Suspect]
     Active Substance: PREDNISOLONE
     Indication: PRODUCT USED FOR UNKNOWN INDICATION
     Route: 048
     Dates: start: 20150729
  6. VINCRISTINE SULFATE. [Suspect]
     Active Substance: VINCRISTINE SULFATE
     Indication: B-CELL LYMPHOMA
     Route: 041
     Dates: start: 20150729
  7. DOXORUBICIN HYDROCHLORIDE. [Suspect]
     Active Substance: DOXORUBICIN HYDROCHLORIDE
     Indication: B-CELL LYMPHOMA
     Route: 041
     Dates: start: 20150729
  8. SENDOXAN [Suspect]
     Active Substance: CYCLOPHOSPHAMIDE
     Indication: B-CELL LYMPHOMA
     Route: 041
     Dates: start: 20150729
  9. IMOVANE [Concomitant]
     Active Substance: ZOPICLONE
     Indication: INSOMNIA
     Dosage: IN THE EVENING
     Route: 048
  10. DIVISUN [Concomitant]
     Indication: VITAMIN D DEFICIENCY
     Route: 048

REACTIONS (7)
  - Somnolence [Not Recovered/Not Resolved]
  - Cognitive disorder [Not Recovered/Not Resolved]
  - Seizure [Unknown]
  - Hallucination [Unknown]
  - General physical health deterioration [Unknown]
  - Altered state of consciousness [Not Recovered/Not Resolved]
  - Status epilepticus [Not Recovered/Not Resolved]

NARRATIVE: CASE EVENT DATE: 20150804
